FAERS Safety Report 24042015 (Version 2)
Quarter: 2025Q1

REPORT INFORMATION
  Report Type: Spontaneous
  Country: US (occurrence: US)
  Receive Date: 20240702
  Receipt Date: 20250310
  Transmission Date: 20250409
  Serious: Yes (Hospitalization, Other)
  Sender: TG THERAPEUTICS
  Company Number: US-TG THERAPEUTICS INC.-TGT003750

PATIENT

DRUGS (2)
  1. BRIUMVI [Suspect]
     Active Substance: UBLITUXIMAB-XIIY
     Indication: Multiple sclerosis
     Route: 042
     Dates: start: 20230726, end: 20230726
  2. BRIUMVI [Suspect]
     Active Substance: UBLITUXIMAB-XIIY
     Route: 042
     Dates: start: 20240619, end: 20240619

REACTIONS (4)
  - Meningitis haemophilus [Recovered/Resolved]
  - Multiple sclerosis [Unknown]
  - Eye infection [Unknown]
  - Off label use [Unknown]

NARRATIVE: CASE EVENT DATE: 20230726
